FAERS Safety Report 23854916 (Version 2)
Quarter: 2024Q3

REPORT INFORMATION
  Report Type: Spontaneous
  Country: US (occurrence: US)
  Receive Date: 20240514
  Receipt Date: 20240812
  Transmission Date: 20241017
  Serious: Yes (Other)
  Sender: ANI
  Company Number: US-ANIPHARMA-2024-US-021031

PATIENT
  Age: 78 Year
  Sex: Female

DRUGS (20)
  1. CORTICOTROPIN [Suspect]
     Active Substance: CORTICOTROPIN
     Indication: Uveitis
     Dosage: 80 UNITS 2 TIMES A WEEK / 60 UNITS (0.75 ML) TWO TIMES A WEEK
     Route: 058
     Dates: start: 20240318
  2. TYLENOL PM EXTRA STRENGTH [Concomitant]
     Active Substance: ACETAMINOPHEN\DIPHENHYDRAMINE HYDROCHLORIDE
  3. FAMOTIDINE [Concomitant]
     Active Substance: FAMOTIDINE
  4. LOTEPREDNOL ETABONATE [Concomitant]
     Active Substance: LOTEPREDNOL ETABONATE
  5. TYLENOL EXTRA STRENGTH [Concomitant]
     Active Substance: ACETAMINOPHEN
  6. PREDNISOLONE ACETATE [Concomitant]
     Active Substance: PREDNISOLONE ACETATE
  7. LEVOTHYROXINE SODIUM [Concomitant]
     Active Substance: LEVOTHYROXINE SODIUM
  8. ATORVASTATIN CALCIUM [Concomitant]
     Active Substance: ATORVASTATIN CALCIUM
  9. SIMBRINZA [Concomitant]
     Active Substance: BRIMONIDINE TARTRATE\BRINZOLAMIDE
  10. PROLENSA [Concomitant]
     Active Substance: BROMFENAC SODIUM
  11. VYZULTA [Concomitant]
     Active Substance: LATANOPROSTENE BUNOD
  12. CARETOUCH CPAP + BIPAP [Concomitant]
  13. HYDROCHLOROTHIAZIDE [Concomitant]
     Active Substance: HYDROCHLOROTHIAZIDE
  14. METAMUCIL [Concomitant]
     Active Substance: PLANTAGO SEED
  15. COLACE [Concomitant]
     Active Substance: DOCUSATE SODIUM
  16. MIRALAX [Concomitant]
     Active Substance: POLYETHYLENE GLYCOL 3350
  17. ZYRTEC [Concomitant]
     Active Substance: CETIRIZINE HYDROCHLORIDE
  18. COENZYME Q10 [Concomitant]
     Active Substance: DIETARY SUPPLEMENT\UBIDECARENONE
  19. D2000 ULTRA STRENGTH [Concomitant]
  20. ASPIRIN [Concomitant]
     Active Substance: ASPIRIN

REACTIONS (9)
  - Flushing [Unknown]
  - Product administration interrupted [Unknown]
  - Blood glucose increased [Unknown]
  - Erythema [Unknown]
  - Cardiac disorder [Unknown]
  - Insomnia [Unknown]
  - Hypertension [Unknown]
  - Rash [Recovered/Resolved]
  - Contraindicated product administered [Not Recovered/Not Resolved]

NARRATIVE: CASE EVENT DATE: 20240319
